FAERS Safety Report 10522534 (Version 2)
Quarter: 2014Q4

REPORT INFORMATION
  Report Type: Spontaneous
  Country: BR (occurrence: BR)
  Receive Date: 20141016
  Receipt Date: 20141201
  Transmission Date: 20150528
  Serious: Yes (Hospitalization, Other)
  Sender: FDA-Public Use
  Company Number: BR-PFIZER INC-2014280350

PATIENT
  Age: 63 Year
  Sex: Female
  Weight: 64 kg

DRUGS (4)
  1. FRONTAL [Suspect]
     Active Substance: ALPRAZOLAM
     Dosage: 2 MG, 2X/DAY
     Route: 048
     Dates: start: 2012, end: 201310
  2. FRONTAL [Suspect]
     Active Substance: ALPRAZOLAM
     Dosage: 2 MG (ONE TABLET), DAILY
     Route: 048
     Dates: start: 201310
  3. FRONTAL [Suspect]
     Active Substance: ALPRAZOLAM
     Indication: SLEEP DISORDER
     Dosage: 1 MG, DAILY
     Route: 048
     Dates: start: 2011, end: 2012
  4. FRONTAL [Suspect]
     Active Substance: ALPRAZOLAM
     Dosage: 6 MG (3 TABLETS STRENGTH 2MG ), DAILY
     Route: 048

REACTIONS (11)
  - Platelet count decreased [Recovering/Resolving]
  - Head discomfort [Not Recovered/Not Resolved]
  - Blood potassium decreased [Recovering/Resolving]
  - Urinary tract infection [Unknown]
  - Blood pressure increased [Unknown]
  - Anxiety disorder [Not Recovered/Not Resolved]
  - Anaemia [Unknown]
  - Mitral valve disease [Recovering/Resolving]
  - Gastritis [Not Recovered/Not Resolved]
  - Drug dependence [Not Recovered/Not Resolved]
  - Drug ineffective [Unknown]

NARRATIVE: CASE EVENT DATE: 2013
